FAERS Safety Report 12728837 (Version 1)
Quarter: 2016Q3

REPORT INFORMATION
  Report Type: Spontaneous
  Country: US (occurrence: US)
  Receive Date: 20160909
  Receipt Date: 20160909
  Transmission Date: 20161109
  Serious: No
  Sender: FDA-Public Use
  Company Number: US-ASTRAZENECA-2016SE88338

PATIENT
  Sex: Female
  Weight: 47.6 kg

DRUGS (4)
  1. METOPROLOL UNSPECIFIED [Suspect]
     Active Substance: METOPROLOL
     Indication: ILL-DEFINED DISORDER
     Route: 048
     Dates: start: 201602
  2. CRESTOR [Suspect]
     Active Substance: ROSUVASTATIN CALCIUM
     Indication: BLOOD CHOLESTEROL ABNORMAL
     Route: 048
  3. ALPRAZOLAM. [Concomitant]
     Active Substance: ALPRAZOLAM
     Indication: ANXIETY DISORDER
     Route: 048
  4. LOSARTAN. [Concomitant]
     Active Substance: LOSARTAN
     Indication: BLOOD PRESSURE ABNORMAL
     Route: 048

REACTIONS (5)
  - Blood cholesterol increased [Unknown]
  - Blood triglycerides abnormal [Unknown]
  - Product use issue [Unknown]
  - Low density lipoprotein increased [Unknown]
  - Abdominal pain upper [Unknown]

NARRATIVE: CASE EVENT DATE: 20160810
